FAERS Safety Report 16005142 (Version 1)
Quarter: 2019Q1

REPORT INFORMATION
  Report Type: Spontaneous
  Country: US (occurrence: US)
  Receive Date: 20190130
  Receipt Date: 20190130
  Transmission Date: 20190418
  Serious: Yes (Hospitalization)
  Sender: FDA-Public Use
  Company Number: None

PATIENT
  Age: 23 Year
  Sex: Male

DRUGS (30)
  1. POLYETHY GLYCOL [Concomitant]
  2. VITAMIN D [Concomitant]
     Active Substance: CHOLECALCIFEROL
  3. COMPLETE FORM [Concomitant]
  4. CREON [Concomitant]
     Active Substance: PANCRELIPASE AMYLASE\PANCRELIPASE LIPASE\PANCRELIPASE PROTEASE
  5. FLUTICASONE. [Concomitant]
     Active Substance: FLUTICASONE
  6. FUROSEMIDE. [Concomitant]
     Active Substance: FUROSEMIDE
  7. OLANZAPINE. [Concomitant]
     Active Substance: OLANZAPINE
  8. QVAR [Concomitant]
     Active Substance: BECLOMETHASONE DIPROPIONATE
  9. TOBI PODHALER [Suspect]
     Active Substance: TOBRAMYCIN
     Indication: CYSTIC FIBROSIS
     Route: 055
     Dates: start: 20181210
  10. AZITHROMYCIN ANHYDROUS. [Concomitant]
     Active Substance: AZITHROMYCIN ANHYDROUS
  11. DRONABINOL. [Concomitant]
     Active Substance: DRONABINOL
  12. A-HYDROCORT [Concomitant]
     Active Substance: HYDROCORTISONE SODIUM SUCCINATE
  13. PULMOZYME [Concomitant]
     Active Substance: DORNASE ALFA
  14. RANITIDINE. [Concomitant]
     Active Substance: RANITIDINE
  15. CLONIDINE. [Concomitant]
     Active Substance: CLONIDINE
  16. GAS RELIEF [Concomitant]
     Active Substance: DIMETHICONE
  17. LORATADINE. [Concomitant]
     Active Substance: LORATADINE
  18. ONDASETRON ODT [Concomitant]
  19. NITRO-BID OINTMENT [Concomitant]
  20. PANTOPRAZOLE [Concomitant]
     Active Substance: PANTOPRAZOLE
  21. SOD CHLORIDE 7% [Concomitant]
     Active Substance: SODIUM CHLORIDE
  22. URSODIOL. [Concomitant]
     Active Substance: URSODIOL
  23. HYOSCYAMINE ER [Concomitant]
     Active Substance: HYOSCYAMINE SULFATE
  24. ENSURE [Concomitant]
     Active Substance: AMINO ACIDS\DEXTROSE\ELECTROLYTES NOS\SOYBEAN OIL\VITAMINS
  25. GABAPENTIN. [Concomitant]
     Active Substance: GABAPENTIN
  26. DIVALPROEX DR [Concomitant]
     Active Substance: DIVALPROEX SODIUM
  27. SUBOXONE [Concomitant]
     Active Substance: BUPRENORPHINE HYDROCHLORIDE\NALOXONE HYDROCHLORIDE
  28. BUSPIRONE [Concomitant]
     Active Substance: BUSPIRONE HYDROCHLORIDE
  29. PROAIR HFA [Concomitant]
     Active Substance: ALBUTEROL SULFATE
  30. SERTRALINE [Concomitant]
     Active Substance: SERTRALINE HYDROCHLORIDE

REACTIONS (4)
  - Lung disorder [None]
  - Dyspnoea [None]
  - Sinus operation [None]
  - Condition aggravated [None]

NARRATIVE: CASE EVENT DATE: 20181231
